FAERS Safety Report 12216185 (Version 3)
Quarter: 2016Q3

REPORT INFORMATION
  Report Type: Report from Study
  Country: JP (occurrence: JP)
  Receive Date: 20160329
  Receipt Date: 20160907
  Transmission Date: 20161109
  Serious: Yes (Other)
  Sender: FDA-Public Use
  Company Number: JP-ROCHE-1730160

PATIENT

DRUGS (4)
  1. CARBOPLATIN. [Suspect]
     Active Substance: CARBOPLATIN
     Indication: NON-SMALL CELL LUNG CANCER
     Dosage: AN AREA UNDER THE CURVE = 6
     Route: 042
  2. PEMETREXED [Suspect]
     Active Substance: PEMETREXED
     Dosage: FOR MAINTENANCE THERAPY
     Route: 042
  3. PEMETREXED [Suspect]
     Active Substance: PEMETREXED
     Indication: NON-SMALL CELL LUNG CANCER
     Dosage: FOR INDUCATION THERAPY
     Route: 042
  4. BEVACIZUMAB [Suspect]
     Active Substance: BEVACIZUMAB
     Indication: NON-SMALL CELL LUNG CANCER
     Dosage: ON DAY 1 OF A 21 DAY CYCLE FOR 4 CYCLES
     Route: 042

REACTIONS (18)
  - Leukopenia [Unknown]
  - Aspartate aminotransferase increased [Unknown]
  - Hypertension [Unknown]
  - Pneumonitis [Unknown]
  - Cardiac arrest [Unknown]
  - Febrile neutropenia [Unknown]
  - Fatigue [Unknown]
  - Alanine aminotransferase increased [Unknown]
  - Gastrointestinal haemorrhage [Unknown]
  - Neutropenia [Unknown]
  - Nausea [Unknown]
  - Vomiting [Unknown]
  - Constipation [Unknown]
  - Gastrointestinal perforation [Unknown]
  - Anaemia [Unknown]
  - Thrombocytopenia [Unknown]
  - Stomatitis [Unknown]
  - Proteinuria [Unknown]
